FAERS Safety Report 24109411 (Version 4)
Quarter: 2024Q3

REPORT INFORMATION
  Report Type: Report from Study
  Country: US (occurrence: US)
  Receive Date: 20240718
  Receipt Date: 20240806
  Transmission Date: 20241017
  Serious: Yes (Other)
  Sender: AMGEN
  Company Number: US-AMGEN-USASP2024141258

PATIENT
  Age: 75 Year
  Sex: Female
  Weight: 65.2 kg

DRUGS (12)
  1. TAVNEOS [Suspect]
     Active Substance: AVACOPAN
     Indication: Anti-neutrophil cytoplasmic antibody positive vasculitis
     Dosage: 30 MILLIGRAM, BID (6 TOTAL 3 AT MORNING 3 AT EVENING)
     Route: 065
     Dates: start: 20240506, end: 20240729
  2. TYLENOL [Concomitant]
     Active Substance: ACETAMINOPHEN
     Indication: Pyrexia
     Dosage: 500 MILLIGRAM, Q4H, PRN/ IF NEEDED
     Route: 048
  3. TYLENOL [Concomitant]
     Active Substance: ACETAMINOPHEN
     Indication: Pain
  4. PACERONE [Concomitant]
     Active Substance: AMIODARONE HYDROCHLORIDE
     Dosage: 200 MILLIGRAM, QD (TAKE 1 TAB ONE TIME EACH DAY BY MOUTH)
     Route: 048
     Dates: start: 20240507
  5. NORVASC [Concomitant]
     Active Substance: AMLODIPINE BESYLATE
     Indication: Hypertension
     Dosage: 2.5 MILLIGRAM, NIGHTLY (AT BED TIME)
     Route: 048
     Dates: start: 20240718
  6. IMURAN [Concomitant]
     Active Substance: AZATHIOPRINE
     Dosage: 50 MILLIGRAM, BID/ 2 TIMES DAILY, START WITH 50 MG DAILY FOR NOW UNTIL FURTHER NOTICE
     Route: 048
     Dates: start: 20240718
  7. CALCIUM CARBONATE [Concomitant]
     Active Substance: CALCIUM CARBONATE
     Dosage: 500 MILLIGRAM, BID (1 TABLET, ORAL, 2 TIMES DAILY)
     Route: 048
  8. VITAMIN D [Concomitant]
     Active Substance: VITAMIN D NOS
     Dosage: 3.125 MICROGRAM, BID (1 TABLET, ORAL, 2 TIMES DAILY)
     Route: 048
  9. FISH OIL [Concomitant]
     Active Substance: FISH OIL
     Dosage: 1000 MILLIGRAM, QD/DAILY BY MOUTH
     Route: 048
  10. LASIX [Concomitant]
     Active Substance: FUROSEMIDE
     Indication: Oedema
     Dosage: 20 MILLIGRAM, QD/ DAILY PRN BY MOUTH
     Route: 048
     Dates: start: 20240514
  11. PROTONIX [Concomitant]
     Active Substance: PANTOPRAZOLE SODIUM
     Dosage: 40 MILLIGRAM, QD BY MOUTH 2 TIMES EACH DAY
     Route: 048
     Dates: start: 20240401
  12. PERI-COLACE [Concomitant]
     Active Substance: CASANTHRANOL\DOCUSATE SODIUM
     Indication: Constipation
     Dosage: 8.6-50MG/TAB, BID/ 1 TABLET, ORAL, 2 TIMES DAILY PRN
     Route: 048

REACTIONS (6)
  - Pericardial effusion [Unknown]
  - Blood pressure systolic increased [Unknown]
  - Oedema peripheral [Unknown]
  - Alopecia [Unknown]
  - Skin lesion [Unknown]
  - Product use issue [Unknown]

NARRATIVE: CASE EVENT DATE: 20240601
